FAERS Safety Report 8953329 (Version 1)
Quarter: 2012Q4

REPORT INFORMATION
  Report Type: 
  Country: JP (occurrence: JP)
  Receive Date: 20121206
  Receipt Date: 20121206
  Transmission Date: 20130627
  Serious: Yes (Hospitalization)
  Sender: FDA-Public Use
  Company Number: JP-JNJFOC-20121109497

PATIENT
  Age: 77 Year
  Sex: Male
  Weight: 67 kg

DRUGS (10)
  1. XARELTO [Suspect]
     Indication: PRODUCT USED FOR UNKNOWN INDICATION
     Route: 048
     Dates: start: 20121103
  2. XARELTO [Suspect]
     Indication: PRODUCT USED FOR UNKNOWN INDICATION
     Route: 048
     Dates: start: 20120626, end: 20121101
  3. TAKEPRON [Concomitant]
     Indication: GASTROOESOPHAGEAL REFLUX DISEASE
     Route: 048
  4. MUCOSTA [Concomitant]
     Indication: GASTRITIS
     Route: 048
  5. ALPRAZOLAM [Concomitant]
     Indication: ANXIETY
     Route: 048
  6. HOMOCHLORCYCLIZINE HYDROCHLORIDE [Concomitant]
     Indication: RHINITIS ALLERGIC
     Route: 048
  7. LEVOTOMIN [Concomitant]
     Indication: INSOMNIA
     Route: 048
  8. DEPAS [Concomitant]
     Indication: INSOMNIA
     Route: 048
  9. MAGMITT [Concomitant]
     Indication: CONSTIPATION
     Route: 048
  10. RISPERIDONE [Concomitant]
     Indication: SCHIZOPHRENIA
     Route: 048

REACTIONS (1)
  - Haemothorax [Recovered/Resolved]
